FAERS Safety Report 9284403 (Version 2)
Quarter: 2013Q2

REPORT INFORMATION
  Report Type: Spontaneous
  Country: ES (occurrence: ES)
  Receive Date: 20130510
  Receipt Date: 20130606
  Transmission Date: 20140414
  Serious: Yes (Life-Threatening, Hospitalization)
  Sender: FDA-Public Use
  Company Number: ES-ACTAVIS-2013-08694

PATIENT
  Age: 65 Year
  Sex: Female

DRUGS (3)
  1. PACLITAXEL (UNKNOWN) [Suspect]
     Indication: OVARIAN CANCER
     Dosage: 150 MG, DAILY
     Route: 042
     Dates: start: 20130424, end: 20130424
  2. OMEPRAZOLE [Concomitant]
     Indication: PRODUCT USED FOR UNKNOWN INDICATION
     Dosage: 20 MG, DAILY
     Route: 065
  3. METOCLOPRAMIDE [Concomitant]
     Indication: NAUSEA
     Dosage: 10 MG, DAILY
     Route: 065

REACTIONS (5)
  - Cyanosis [Recovered/Resolved]
  - Erythema [Recovered/Resolved]
  - Dyspnoea [Recovered/Resolved]
  - Nausea [Recovered/Resolved]
  - Hyperhidrosis [Recovered/Resolved]
